FAERS Safety Report 6575010-9 (Version None)
Quarter: 2010Q1

REPORT INFORMATION
  Report Type: 
  Country: None (occurrence: None)
  Receive Date: 20100209
  Receipt Date: 20100201
  Transmission Date: 20100710
  Serious: Yes (Other)
  Sender: FDA-Public Use
  Company Number: US-BAYER-201011202BCC

PATIENT
  Age: 51 Year
  Sex: Female
  Weight: 118 kg

DRUGS (5)
  1. ALEVE (CAPLET) [Suspect]
     Indication: ARTHRITIS
     Dosage: UNIT DOSE: 220 MG
     Route: 048
     Dates: start: 19800101
  2. ADVIL [Suspect]
     Indication: ARTHRITIS
     Dosage: UNIT DOSE: 1 DF
     Dates: start: 19800101
  3. MOTRIN [Suspect]
     Indication: ARTHRITIS
     Dosage: UNIT DOSE: 200 MG
     Route: 048
     Dates: start: 19800101
  4. TYLENOL 8 HOUR MUSCLE AND PAIN [Suspect]
     Indication: FIBROMYALGIA
     Dosage: UNIT DOSE: 650 MG
     Route: 048
     Dates: start: 19800101
  5. FINACEA [Concomitant]
     Indication: ROSACEA
     Route: 061
     Dates: start: 20080101

REACTIONS (3)
  - ABDOMINAL DISTENSION [None]
  - HELICOBACTER INFECTION [None]
  - VOMITING [None]
